FAERS Safety Report 21261490 (Version 6)
Quarter: 2022Q3

REPORT INFORMATION
  Report Type: Spontaneous
  Country: US (occurrence: US)
  Receive Date: 20220827
  Receipt Date: 20220930
  Transmission Date: 20221027
  Serious: No
  Sender: FDA-Public Use
  Company Number: US-UNITED THERAPEUTICS-UNT-2022-019535

PATIENT
  Sex: Female
  Weight: 56.689 kg

DRUGS (7)
  1. REMODULIN [Suspect]
     Active Substance: TREPROSTINIL
     Indication: Pulmonary arterial hypertension
     Dosage: UNK, CONTINUING
     Route: 058
  2. REMODULIN [Suspect]
     Active Substance: TREPROSTINIL
     Dosage: 0.0452 ?G/KG (PRE-FILLED WITH 3 ML/CASSETTE, PUMP RATE OF 31 MCL/HR), CONTINUING
     Route: 058
  3. REMODULIN [Suspect]
     Active Substance: TREPROSTINIL
     Dosage: UNK, (PRE-FILLED WITH 3 ML/CASSETTE, PUMP RATE OF 30 MCL/HR), CONTINUING
     Route: 058
  4. REMODULIN [Suspect]
     Active Substance: TREPROSTINIL
     Dosage: 0.0472 ?G/KG (PRE-FILLED WITH 3 ML/CASSETTE, PUMP RATE OF 30 MCL/HR), CONTINUING
     Route: 058
  5. REMODULIN [Suspect]
     Active Substance: TREPROSTINIL
     Dosage: 0.0492 ?G/KG (PRE-FILLED WITH 3 ML/CASSETTE, PUMP RATE OF 32 MCL/HR), CONTINUING
     Route: 058
  6. TADALAFIL [Concomitant]
     Active Substance: TADALAFIL
     Indication: Product used for unknown indication
     Dosage: UNK
     Route: 065
  7. OPSUMIT [Concomitant]
     Active Substance: MACITENTAN
     Indication: Product used for unknown indication
     Route: 065

REACTIONS (3)
  - Dyspnoea exertional [Not Recovered/Not Resolved]
  - Infusion site infection [Unknown]
  - Oedema peripheral [Recovered/Resolved]

NARRATIVE: CASE EVENT DATE: 20220101
